FAERS Safety Report 25906930 (Version 1)
Quarter: 2025Q4

REPORT INFORMATION
  Report Type: Spontaneous
  Country: GB (occurrence: GB)
  Receive Date: 20251010
  Receipt Date: 20251010
  Transmission Date: 20260118
  Serious: Yes (Other)
  Sender: MERZ
  Company Number: GB-ACORDA THERAPEUTICS IRELAND LIMITED-ACO_179154_2025

PATIENT
  Sex: Male

DRUGS (1)
  1. DALFAMPRIDINE [Suspect]
     Active Substance: DALFAMPRIDINE
     Indication: Multiple sclerosis
     Dosage: 10 MILLIGRAM, BID
     Route: 048

REACTIONS (5)
  - Prostate cancer [Unknown]
  - Clavicle fracture [Unknown]
  - Prostatic disorder [Unknown]
  - Decreased activity [Unknown]
  - Illness [Unknown]
